FAERS Safety Report 6814484-2 (Version None)
Quarter: 2010Q3

REPORT INFORMATION
  Report Type: 
  Country: None (occurrence: None)
  Receive Date: 20100702
  Receipt Date: 20100629
  Transmission Date: 20110219
  Serious: Yes (Death, Other)
  Sender: FDA-Public Use
  Company Number: PHHY2010CA40663

PATIENT
  Sex: Female

DRUGS (12)
  1. EXELON [Suspect]
     Indication: DEMENTIA
     Dosage: 10 MG, QD
     Route: 062
     Dates: start: 20091215, end: 20100506
  2. ASPIRIN [Concomitant]
     Dosage: 80 MG, QD
  3. ATASOL FORTE [Concomitant]
     Dosage: 650 MG, QHS
  4. CELEXA [Concomitant]
     Dosage: 30 MG, QD
  5. LACTULOSE [Concomitant]
     Dosage: UNK
  6. DIGOXIN [Concomitant]
     Dosage: 0.125 MG, QD
  7. LASIX [Concomitant]
     Dosage: 40 MG, QD
  8. RIVOTRIL [Concomitant]
     Dosage: 0.5 MG, BID
  9. SYNTHROID [Concomitant]
     Dosage: 0.075 MG, TID
  10. TOPAMAX [Concomitant]
     Dosage: 25 MG, QHS
  11. ATASOL [Concomitant]
     Dosage: 500 MG, TID, PRN
  12. CODEINE SULFATE [Concomitant]
     Dosage: 15 MG, QD, PRN

REACTIONS (5)
  - ACTIVITIES OF DAILY LIVING IMPAIRED [None]
  - DEATH [None]
  - DEHYDRATION [None]
  - GENERAL PHYSICAL HEALTH DETERIORATION [None]
  - HYPOPHAGIA [None]
